FAERS Safety Report 7177753-5 (Version None)
Quarter: 2010Q4

REPORT INFORMATION
  Report Type: 
  Country: None (occurrence: None)
  Receive Date: 20101220
  Receipt Date: 20101215
  Transmission Date: 20110411
  Serious: Yes (Hospitalization)
  Sender: FDA-Public Use
  Company Number: PHHY2010JP85215

PATIENT
  Age: 76 Year
  Sex: Male

DRUGS (1)
  1. CEFTRIAXONE SODIUM [Suspect]
     Indication: PNEUMONIA ASPIRATION
     Dosage: 2 G, QD
     Route: 042

REACTIONS (7)
  - ALTERED STATE OF CONSCIOUSNESS [None]
  - CHOREOATHETOSIS [None]
  - DISORIENTATION [None]
  - DYSKINESIA [None]
  - FEELING ABNORMAL [None]
  - RESTLESSNESS [None]
  - SPEECH DISORDER [None]
